FAERS Safety Report 6902581-2 (Version None)
Quarter: 2010Q3

REPORT INFORMATION
  Report Type: 
  Country: None (occurrence: None)
  Receive Date: 20100803
  Receipt Date: 20080531
  Transmission Date: 20110219
  Serious: No
  Sender: FDA-Public Use
  Company Number: US-PFIZER INC-2008047576

PATIENT
  Sex: Female
  Weight: 83.5 kg

DRUGS (7)
  1. LYRICA [Suspect]
     Indication: PAIN IN EXTREMITY
     Route: 048
     Dates: start: 20080530
  2. ALISKIREN [Concomitant]
  3. PREVACID [Concomitant]
  4. FUROSEMIDE [Concomitant]
  5. PLAVIX [Concomitant]
  6. AVALIDE [Concomitant]
  7. TYLENOL [Concomitant]

REACTIONS (5)
  - DIZZINESS [None]
  - DRY MOUTH [None]
  - FEELING ABNORMAL [None]
  - SOMNOLENCE [None]
  - VISION BLURRED [None]
